FAERS Safety Report 5502266-3 (Version None)
Quarter: 2007Q4

REPORT INFORMATION
  Report Type: 
  Country: None (occurrence: None)
  Receive Date: 20071030
  Receipt Date: 20071022
  Transmission Date: 20080405
  Serious: Yes (Death)
  Sender: FDA-Public Use
  Company Number: TR-ELI_LILLY_AND_COMPANY-TR200710005585

PATIENT
  Sex: Male
  Weight: 95 kg

DRUGS (2)
  1. HUMULIN 70/30 [Suspect]
     Indication: TYPE 2 DIABETES MELLITUS
     Route: 065
  2. HUMULIN 70/30 [Suspect]
     Dosage: 15 U, EACH EVENING
     Route: 065

REACTIONS (1)
  - CENTRAL NERVOUS SYSTEM LYMPHOMA [None]
